FAERS Safety Report 17228213 (Version 1)
Quarter: 2020Q1

REPORT INFORMATION
  Report Type: Spontaneous
  Country: IT (occurrence: IT)
  Receive Date: 20200103
  Receipt Date: 20200103
  Transmission Date: 20200409
  Serious: Yes (Death, Hospitalization, Other)
  Sender: FDA-Public Use
  Company Number: IT-SUN PHARMACEUTICAL INDUSTRIES LTD-2019RR-232175

PATIENT
  Age: 77 Year
  Sex: Female

DRUGS (5)
  1. FLUOROURACIL. [Suspect]
     Active Substance: FLUOROURACIL
     Dosage: 1200 MILLIGRAM/SQ. METER, 1DOSE/2 WEEKS, IC 48 HOURS
  2. IRINOTECAN [Suspect]
     Active Substance: IRINOTECAN
     Indication: RECTAL CANCER STAGE III
     Dosage: 125 MILLIGRAM, WEEKLY, SHE RECEIVED 4 DOSES
     Route: 065
  3. OXALIPLATIN. [Suspect]
     Active Substance: OXALIPLATIN
     Indication: RECTAL CANCER STAGE III
     Dosage: 85 MILLIGRAM/SQ. METER, 1DOSE/2 WEEKS
     Route: 065
  4. LEUCOVORIN. [Suspect]
     Active Substance: LEUCOVORIN
     Indication: RECTAL CANCER STAGE III
     Dosage: 100 MILLIGRAM/SQ. METER DAYS 1,2 Q14
     Route: 065
  5. FLUOROURACIL. [Suspect]
     Active Substance: FLUOROURACIL
     Indication: RECTAL CANCER STAGE III
     Dosage: 400 MILLIGRAM/SQ. METER, 1DOSE/2 WEEKS
     Route: 065

REACTIONS (3)
  - Diarrhoea [Unknown]
  - Therapeutic product effect incomplete [Unknown]
  - Gastrointestinal toxicity [Unknown]

NARRATIVE: CASE EVENT DATE: 201712
